FAERS Safety Report 8960988 (Version 2)
Quarter: 2013Q1

REPORT INFORMATION
  Report Type: Spontaneous
  Country: US (occurrence: US)
  Receive Date: 20121212
  Receipt Date: 20130118
  Transmission Date: 20140127
  Serious: Yes (Other)
  Sender: FDA-Public Use
  Company Number: US-FRI-1000040943

PATIENT
  Age: 41 Year
  Sex: Male

DRUGS (5)
  1. ARMOUR THYROID [Suspect]
     Indication: HORMONE REPLACEMENT THERAPY
     Dosage: 90 MG
     Route: 048
     Dates: start: 20121107, end: 201212
  2. ARMOUR THYROID [Suspect]
     Dosage: 105 MG
     Route: 048
     Dates: start: 201212, end: 20130114
  3. ARMOUR THYROID [Suspect]
     Dosage: 120 MG
     Route: 048
     Dates: start: 20130115
  4. METOPROLOL [Concomitant]
     Indication: HYPERTENSION
     Dosage: 50 MG
     Dates: end: 2012
  5. METOPROLOL [Concomitant]
     Dosage: 25 MG
     Dates: start: 2012

REACTIONS (7)
  - Loss of consciousness [Recovered/Resolved]
  - Hyperglycaemia [Not Recovered/Not Resolved]
  - Heart rate increased [Not Recovered/Not Resolved]
  - Blood pressure decreased [Recovered/Resolved]
  - Peripheral coldness [Recovering/Resolving]
  - Chills [Not Recovered/Not Resolved]
  - Dizziness [Recovered/Resolved]
